FAERS Safety Report 11314987 (Version 1)
Quarter: 2015Q3

REPORT INFORMATION
  Report Type: Spontaneous
  Country: PR (occurrence: PR)
  Receive Date: 20150727
  Receipt Date: 20150727
  Transmission Date: 20151125
  Serious: No
  Sender: FDA-Public Use
  Company Number: PR-BAXTER-2015BAX039588

PATIENT
  Age: 6 Month
  Sex: Female
  Weight: 5 kg

DRUGS (10)
  1. NA CHLORIDE [Suspect]
     Active Substance: SODIUM CHLORIDE
     Indication: PARENTERAL NUTRITION
     Route: 042
     Dates: start: 20150713, end: 20150713
  2. CA GLUCONATE [Suspect]
     Active Substance: CALCIUM GLUCONATE
     Indication: PARENTERAL NUTRITION
     Route: 042
     Dates: start: 20150713, end: 20150713
  3. NA PHOSPHATE [Suspect]
     Active Substance: SODIUM PHOSPHATE
     Indication: PARENTERAL NUTRITION
     Route: 042
     Dates: start: 20150713, end: 20150713
  4. 70% DEXTROSE INJECTION USP [Suspect]
     Active Substance: DEXTROSE
     Indication: PARENTERAL NUTRITION
     Route: 042
     Dates: start: 20150713, end: 20150713
  5. K CHLORIDE [Suspect]
     Active Substance: POTASSIUM CHLORIDE
     Indication: PARENTERAL NUTRITION
     Route: 042
     Dates: start: 20150713, end: 20150713
  6. STERILE WATER [Suspect]
     Active Substance: WATER
     Indication: PARENTERAL NUTRITION
     Route: 042
     Dates: start: 20150713, end: 20150713
  7. PEDIATRIC INFUVITE MULTIPLE VITAMINS [Suspect]
     Active Substance: ALPHA-TOCOPHEROL ACETATE\ASCORBIC ACID\BIOTIN\CHOLECALCIFEROL\CYANOCOBALAMIN\DEXPANTHENOL\FOLIC ACID\NIACINAMIDE\PHYTONADIONE\PYRIDOXINE HYDROCHLORIDE\RIBOFLAVIN 5^-PHOSPHATE SODIUM\THIAMINE HYDROCHLORIDE\VITAMIN A PALMITATE
     Indication: PARENTERAL NUTRITION
     Route: 042
     Dates: start: 20150713, end: 20150713
  8. MG SULPHATE [Suspect]
     Active Substance: MAGNESIUM SULFATE
     Indication: PARENTERAL NUTRITION
     Route: 042
     Dates: start: 20150713, end: 20150713
  9. MULTITRACE [Suspect]
     Active Substance: CHROMIC CHLORIDE\CUPRIC CHLORIDE\MANGANESE CHLORIDE\ZINC CHLORIDE
     Indication: PARENTERAL NUTRITION
     Route: 042
     Dates: start: 20150713, end: 20150713
  10. PREMASOL 6% [Suspect]
     Active Substance: AMINO ACIDS
     Indication: PARENTERAL NUTRITION
     Route: 042
     Dates: start: 20150713, end: 20150713

REACTIONS (2)
  - Product compounding quality issue [Recovered/Resolved]
  - No adverse event [Recovered/Resolved]

NARRATIVE: CASE EVENT DATE: 20150713
